FAERS Safety Report 5396014-8 (Version None)
Quarter: 2007Q3

REPORT INFORMATION
  Report Type: 
  Country: None (occurrence: None)
  Receive Date: 20070724
  Receipt Date: 20070712
  Transmission Date: 20080115
  Serious: Yes (Hospitalization, Other)
  Sender: FDA-Public Use
  Company Number: US-PFIZER INC-2007058271

PATIENT
  Sex: Male
  Weight: 131.5 kg

DRUGS (4)
  1. CELEBREX [Suspect]
     Indication: MUSCULOSKELETAL PAIN
  2. CELEBREX [Suspect]
     Indication: BACK PAIN
  3. BEXTRA [Suspect]
     Indication: MUSCULOSKELETAL PAIN
     Dates: start: 20030101
  4. BEXTRA [Suspect]
     Indication: BACK PAIN

REACTIONS (2)
  - CEREBROVASCULAR ACCIDENT [None]
  - CHEST PAIN [None]
